FAERS Safety Report 14367753 (Version 1)
Quarter: 2018Q1

REPORT INFORMATION
  Report Type: Spontaneous
  Country: US (occurrence: US)
  Receive Date: 20180109
  Receipt Date: 20180109
  Transmission Date: 20180509
  Serious: No
  Sender: FDA-Public Use
  Company Number: US-PERRIGO-17US003068

PATIENT
  Age: 46 Year
  Sex: Female
  Weight: 90.7 kg

DRUGS (1)
  1. MIGRAINE FORMULA [Suspect]
     Active Substance: ACETAMINOPHEN\ASPIRIN\CAFFEINE
     Indication: ACCIDENTAL EXPOSURE TO PRODUCT
     Dosage: 4 TABLETS, SINGLE
     Route: 048
     Dates: start: 20170406, end: 20170406

REACTIONS (2)
  - Feeling jittery [Recovered/Resolved]
  - Wrong drug administered [Recovered/Resolved]

NARRATIVE: CASE EVENT DATE: 20160406
